FAERS Safety Report 6638763-7 (Version None)
Quarter: 2010Q1

REPORT INFORMATION
  Report Type: 
  Country: None (occurrence: None)
  Receive Date: 20100317
  Receipt Date: 20100304
  Transmission Date: 20100710
  Serious: No
  Sender: FDA-Public Use
  Company Number: JP-PFIZER INC-2010025733

PATIENT
  Age: 97 Year
  Sex: Female

DRUGS (2)
  1. SOLU-MEDROL [Suspect]
     Route: 042
  2. UNASYN [Suspect]
     Dosage: 4.5 G, UNK
     Route: 042

REACTIONS (1)
  - ECZEMA [None]
